FAERS Safety Report 9244968 (Version 2)
Quarter: 2013Q2

REPORT INFORMATION
  Report Type: Spontaneous
  Country: US (occurrence: None)
  Receive Date: 20121130
  Receipt Date: 20130130
  Transmission Date: 20140414
  Serious: Yes (Other)
  Sender: FDA-Public Use
  Company Number: US201209005422

PATIENT
  Age: 27 Year
  Sex: Female

DRUGS (3)
  1. BYDUREON [Suspect]
     Indication: TYPE 2 DIABETES MELLITUS
     Dosage: (1/W)
     Route: 058
     Dates: start: 20120905
  2. BYETTA (EXENATIDE) PEN, DISPOSABLE [Suspect]
  3. INSULIN (INSULIN) [Concomitant]

REACTIONS (2)
  - Angioedema [None]
  - Pruritus [None]
